FAERS Safety Report 10143364 (Version 1)
Quarter: 2014Q2

REPORT INFORMATION
  Report Type: Spontaneous
  Country: GB (occurrence: GB)
  Receive Date: 20140430
  Receipt Date: 20140430
  Transmission Date: 20141212
  Serious: Yes (Other)
  Sender: FDA-Public Use
  Company Number: GB-TEVA-477137ISR

PATIENT
  Age: 72 Year
  Sex: Male
  Weight: 75.29 kg

DRUGS (7)
  1. SIMVASTATIN [Suspect]
     Indication: BLOOD CHOLESTEROL INCREASED
     Route: 048
     Dates: end: 2013
  2. TAMSULOSIN [Suspect]
  3. COENZYME Q10 [Concomitant]
  4. DOCOSAHEXAENOIC ACID [Concomitant]
  5. MULTIVITAMIN [Concomitant]
  6. PERINDOPRIL [Concomitant]
  7. EICOSAPENTAENOIC ACID [Concomitant]

REACTIONS (12)
  - Urinary tract infection [Recovered/Resolved]
  - Myalgia [Unknown]
  - Dry eye [Unknown]
  - Micturition urgency [Unknown]
  - Pollakiuria [Unknown]
  - Chromaturia [Unknown]
  - Urine output increased [Unknown]
  - Dehydration [Unknown]
  - Gastrointestinal disorder [Unknown]
  - Visual impairment [Unknown]
  - Back pain [Unknown]
  - Dysuria [Unknown]
